FAERS Safety Report 20898352 (Version 3)
Quarter: 2022Q3

REPORT INFORMATION
  Report Type: Report from Study
  Country: US (occurrence: US)
  Receive Date: 20220531
  Receipt Date: 20220824
  Transmission Date: 20221027
  Serious: Yes (Other)
  Sender: FDA-Public Use
  Company Number: US-ABBVIE-22K-163-4414291-00

PATIENT
  Sex: Female

DRUGS (5)
  1. HUMIRA [Suspect]
     Active Substance: ADALIMUMAB
     Indication: Uveitis
     Dosage: CITRATE FREE
     Route: 058
     Dates: start: 20210526
  2. HUMIRA [Suspect]
     Active Substance: ADALIMUMAB
     Indication: Uveitis
     Route: 058
  3. MODERNA COVID-19 VACCINE [Suspect]
     Active Substance: ELASOMERAN
     Indication: COVID-19 immunisation
     Dosage: IST DOSE/MODERNA
     Route: 030
     Dates: start: 20210419, end: 20210419
  4. MODERNA COVID-19 VACCINE [Suspect]
     Active Substance: ELASOMERAN
     Dosage: 2ND DOSE/MODERNA
     Route: 030
     Dates: start: 20210526, end: 20210526
  5. MODERNA COVID-19 VACCINE [Suspect]
     Active Substance: ELASOMERAN
     Dosage: BOOSTER DOSE/MODERNA
     Route: 030
     Dates: start: 20210801, end: 20210801

REACTIONS (20)
  - Haemorrhoids [Unknown]
  - Cataract [Unknown]
  - Vaccination site pain [Unknown]
  - Photophobia [Not Recovered/Not Resolved]
  - Fatigue [Unknown]
  - Joint swelling [Not Recovered/Not Resolved]
  - Mental fatigue [Unknown]
  - Glaucoma [Not Recovered/Not Resolved]
  - Nervous system disorder [Unknown]
  - Contusion [Unknown]
  - Stress [Unknown]
  - Visual impairment [Unknown]
  - Fall [Unknown]
  - Blood iron decreased [Unknown]
  - Anxiety [Not Recovered/Not Resolved]
  - Arthralgia [Unknown]
  - Sarcoidosis [Unknown]
  - Back pain [Unknown]
  - Hypertension [Not Recovered/Not Resolved]
  - Uveitis [Not Recovered/Not Resolved]
